FAERS Safety Report 5505051-1 (Version None)
Quarter: 2007Q4

REPORT INFORMATION
  Report Type: 
  Country: None (occurrence: None)
  Receive Date: 20071102
  Receipt Date: 20071023
  Transmission Date: 20080405
  Serious: Yes (Other)
  Sender: FDA-Public Use
  Company Number: FR-JNJFOC-20070904993

PATIENT
  Age: 57 Year
  Sex: Female
  Weight: 55 kg

DRUGS (4)
  1. REMICADE [Suspect]
     Indication: ANKYLOSING SPONDYLITIS
     Route: 042
  2. BUTAZOLIDINE [Concomitant]
  3. TOPALGIC [Concomitant]
  4. INEXIUM [Concomitant]

REACTIONS (1)
  - LARYNGEAL PAPILLOMA [None]
